FAERS Safety Report 6011235-9 (Version None)
Quarter: 2008Q4

REPORT INFORMATION
  Report Type: 
  Country: None (occurrence: None)
  Receive Date: 20081218
  Receipt Date: 20081210
  Transmission Date: 20090506
  Serious: Yes (Hospitalization, Other)
  Sender: FDA-Public Use
  Company Number: US-MERCK-0712USA08209

PATIENT
  Age: 61 Year
  Sex: Female
  Weight: 80 kg

DRUGS (9)
  1. FOSAMAX [Suspect]
     Indication: OSTEOPENIA
     Route: 048
     Dates: start: 20030201, end: 20060301
  2. KLONOPIN [Concomitant]
     Indication: MAJOR DEPRESSION
     Route: 065
     Dates: start: 19910101
  3. KLONOPIN [Concomitant]
     Indication: ANXIETY
     Route: 065
     Dates: start: 19910101
  4. PROZAC [Concomitant]
     Indication: MAJOR DEPRESSION
     Route: 065
     Dates: start: 19930101
  5. PROZAC [Concomitant]
     Indication: ANXIETY
     Route: 065
     Dates: start: 19930101
  6. ELAVIL [Concomitant]
     Indication: MAJOR DEPRESSION
     Route: 065
     Dates: start: 19930101
  7. ELAVIL [Concomitant]
     Indication: ANXIETY
     Route: 065
     Dates: start: 19930101
  8. REMERON [Concomitant]
     Indication: MAJOR DEPRESSION
     Route: 065
     Dates: start: 19990101
  9. REMERON [Concomitant]
     Indication: ANXIETY
     Route: 065
     Dates: start: 19990101

REACTIONS (55)
  - ADVERSE DRUG REACTION [None]
  - ANAEMIA [None]
  - ANXIETY [None]
  - ARTHRALGIA [None]
  - ASTHMA [None]
  - BENIGN NEOPLASM [None]
  - BRONCHITIS [None]
  - CATARACT [None]
  - CHRONIC SINUSITIS [None]
  - COLONIC POLYP [None]
  - COUGH [None]
  - DENTAL CARIES [None]
  - DEPRESSION [None]
  - DERMATITIS [None]
  - DYSPNOEA [None]
  - ESSENTIAL TREMOR [None]
  - EXOSTOSIS [None]
  - FIBROMA [None]
  - FIBROMYALGIA [None]
  - FUNGUS CERVICAL SPECIMEN IDENTIFIED [None]
  - GALLBLADDER DISORDER [None]
  - GASTRIC DISORDER [None]
  - GASTRIC ULCER [None]
  - GASTRITIS EROSIVE [None]
  - GASTROOESOPHAGEAL REFLUX DISEASE [None]
  - GLAUCOMA [None]
  - GLUCOSE TOLERANCE IMPAIRED [None]
  - HAEMORRHOIDS [None]
  - HERPES ZOSTER [None]
  - HYPERLIPIDAEMIA [None]
  - IMPAIRED HEALING [None]
  - IRRITABLE BOWEL SYNDROME [None]
  - JOINT SPRAIN [None]
  - MALAISE [None]
  - MEMORY IMPAIRMENT [None]
  - MENTAL DISORDER [None]
  - MUSCLE CONTRACTIONS INVOLUNTARY [None]
  - MUSCLE SPASMS [None]
  - NECK PAIN [None]
  - NERVE ROOT INJURY [None]
  - OESOPHAGEAL ULCER [None]
  - ORAL DISORDER [None]
  - OSTEOARTHRITIS [None]
  - OSTEONECROSIS [None]
  - PAIN [None]
  - PAIN IN JAW [None]
  - PHARYNGITIS [None]
  - PNEUMONIA ASPIRATION [None]
  - ROAD TRAFFIC ACCIDENT [None]
  - STOMATITIS [None]
  - SWELLING [None]
  - TENDONITIS [None]
  - TOOTH ABSCESS [None]
  - URINARY INCONTINENCE [None]
  - WHIPLASH INJURY [None]
